FAERS Safety Report 5646929-8 (Version None)
Quarter: 2008Q1

REPORT INFORMATION
  Report Type: 
  Country: None (occurrence: None)
  Receive Date: 20080229
  Receipt Date: 20080229
  Transmission Date: 20080703
  Serious: No
  Sender: FDA-Public Use
  Company Number: None

PATIENT
  Age: 37 Year
  Sex: Male
  Weight: 93.441 kg

DRUGS (2)
  1. CHANTIX [Suspect]
     Indication: SMOKING CESSATION THERAPY
     Dosage: 1MG 1 P.O. BID ORAL
     Route: 048
     Dates: start: 20080115, end: 20080121
  2. COMMIT LOZENGES [Concomitant]

REACTIONS (3)
  - AGITATION [None]
  - INSOMNIA [None]
  - SUICIDAL IDEATION [None]
